FAERS Safety Report 5001590-0 (Version None)
Quarter: 2006Q2

REPORT INFORMATION
  Report Type: 
  Country: None (occurrence: None)
  Receive Date: 20060511
  Receipt Date: 20060511
  Transmission Date: 20061013
  Serious: Yes (Life-Threatening, Other)
  Sender: FDA-Public Use
  Company Number: None

PATIENT
  Age: 49 Year
  Sex: Male
  Weight: 86.1834 kg

DRUGS (1)
  1. CYMBALTA [Suspect]
     Indication: ANXIETY
     Dosage: 30MG   TWICE DAILY   PO
     Route: 048
     Dates: start: 20060509, end: 20060510

REACTIONS (14)
  - ABNORMAL DREAMS [None]
  - FEELING ABNORMAL [None]
  - GAIT DISTURBANCE [None]
  - HALLUCINATION, AUDITORY [None]
  - HALLUCINATION, VISUAL [None]
  - HYPERHIDROSIS [None]
  - MUSCLE TWITCHING [None]
  - NIGHT SWEATS [None]
  - OCULAR HYPERAEMIA [None]
  - PSYCHIATRIC SYMPTOM [None]
  - PYREXIA [None]
  - THINKING ABNORMAL [None]
  - TREMOR [None]
  - YAWNING [None]
